FAERS Safety Report 23544638 (Version 2)
Quarter: 2024Q1

REPORT INFORMATION
  Report Type: Spontaneous
  Country: US (occurrence: US)
  Receive Date: 20240220
  Receipt Date: 20240307
  Transmission Date: 20240409
  Serious: No
  Sender: FDA-Public Use
  Company Number: US-PFIZER INC-PV202300079820

PATIENT
  Age: 64 Year
  Sex: Female
  Weight: 136 kg

DRUGS (2)
  1. IBRANCE [Suspect]
     Active Substance: PALBOCICLIB
     Indication: Breast cancer metastatic
     Dosage: 100 MG
  2. IBRANCE [Suspect]
     Active Substance: PALBOCICLIB
     Dosage: BY MOUTH DAILY ON DAYS 1 -21, EVERY 28 DAYS. (3 WEEKS ON, 1 WEEK OFF)
     Route: 048

REACTIONS (1)
  - Hypoacusis [Unknown]
